FAERS Safety Report 10884764 (Version 2)
Quarter: 2015Q1

REPORT INFORMATION
  Report Type: Other
  Country: GB (occurrence: GB)
  Receive Date: 20150304
  Receipt Date: 20150324
  Transmission Date: 20150721
  Serious: Yes (Other)
  Sender: FDA-Public Use
  Company Number: GB-GLENMARK GENERICS INC.-2015GMK014091

PATIENT
  Sex: Male

DRUGS (6)
  1. METFORMIN [Suspect]
     Active Substance: METFORMIN HYDROCHLORIDE
     Indication: DIABETES MELLITUS
     Dosage: UNK
     Dates: start: 2003
  2. GLICLAZIDE [Suspect]
     Active Substance: GLICLAZIDE
     Dosage: 2 DF, BID
     Dates: start: 2005
  3. GLICLAZIDE [Suspect]
     Active Substance: GLICLAZIDE
     Dosage: 2 DF, BID
     Dates: start: 2006
  4. GLICLAZIDE [Suspect]
     Active Substance: GLICLAZIDE
     Dosage: 1 DF, BID
     Dates: start: 2001
  5. METFORMIN [Suspect]
     Active Substance: METFORMIN HYDROCHLORIDE
     Dosage: 850 MG, TID
     Dates: start: 2005
  6. GLICLAZIDE [Suspect]
     Active Substance: GLICLAZIDE
     Indication: DIABETES MELLITUS
     Dosage: 1 DF, OD
     Dates: start: 2000

REACTIONS (6)
  - Ulcer [Unknown]
  - Hiatus hernia [Unknown]
  - Gastritis [Unknown]
  - Drug ineffective [Unknown]
  - Abdominal pain upper [Recovered/Resolved]
  - Pollakiuria [Unknown]

NARRATIVE: CASE EVENT DATE: 2000
